FAERS Safety Report 6011081-6 (Version None)
Quarter: 2008Q4

REPORT INFORMATION
  Report Type: 
  Country: None (occurrence: None)
  Receive Date: 20081216
  Receipt Date: 20081205
  Transmission Date: 20090506
  Serious: Yes (Other)
  Sender: FDA-Public Use
  Company Number: CHPA2008US21971

PATIENT
  Age: 69 Year
  Sex: Female

DRUGS (1)
  1. MAALOX MS TOTAL STOMACH RELIEF (NCH) (BISMUTH SUBSALICYLATE) SUSPENSIO [Suspect]
     Dosage: ORAL
     Route: 048
     Dates: start: 20081204, end: 20081205

REACTIONS (2)
  - FAECES DISCOLOURED [None]
  - MELAENA [None]
